FAERS Safety Report 4453934-6 (Version None)
Quarter: 2004Q3

REPORT INFORMATION
  Report Type: 
  Country: None (occurrence: None)
  Receive Date: 20040920
  Receipt Date: 20040909
  Transmission Date: 20050211
  Serious: Yes (Hospitalization)
  Sender: FDA-Public Use
  Company Number: PHBS2004US12028

PATIENT
  Age: 42 Year
  Sex: Female

DRUGS (1)
  1. HYDROCHLOROTHIAZIDE [Suspect]
     Indication: HYPERTENSION

REACTIONS (13)
  - BLOOD SODIUM DECREASED [None]
  - BRAIN OEDEMA [None]
  - CENTRAL PONTINE MYELINOLYSIS [None]
  - DEHYDRATION [None]
  - DIARRHOEA [None]
  - DYSARTHRIA [None]
  - EXTENSOR PLANTAR RESPONSE [None]
  - MUSCULAR WEAKNESS [None]
  - MUTISM [None]
  - NAUSEA [None]
  - QUADRIPARESIS [None]
  - SHOCK [None]
  - VOMITING [None]
